FAERS Safety Report 19038752 (Version 9)
Quarter: 2022Q3

REPORT INFORMATION
  Report Type: Spontaneous
  Country: GB (occurrence: GB)
  Receive Date: 20210322
  Receipt Date: 20220715
  Transmission Date: 20221026
  Serious: Yes (Hospitalization, Other)
  Sender: FDA-Public Use
  Company Number: GB-002147023-PHHY2018GB172795

PATIENT
  Age: 24 Year
  Sex: Male

DRUGS (40)
  1. OLANZAPINE [Suspect]
     Active Substance: OLANZAPINE
     Indication: Schizophrenia
     Route: 065
     Dates: start: 20181130
  2. OLANZAPINE [Suspect]
     Active Substance: OLANZAPINE
     Dates: start: 201801
  3. OLANZAPINE [Suspect]
     Active Substance: OLANZAPINE
     Dates: start: 201811
  4. OLANZAPINE [Suspect]
     Active Substance: OLANZAPINE
  5. CLOZARIL [Suspect]
     Active Substance: CLOZAPINE
     Indication: Schizophrenia
     Route: 048
     Dates: start: 20181212, end: 20181231
  6. CLOZARIL [Suspect]
     Active Substance: CLOZAPINE
     Route: 048
     Dates: start: 20191120, end: 20191202
  7. CLOZARIL [Suspect]
     Active Substance: CLOZAPINE
     Route: 048
     Dates: start: 20181115
  8. CLONAZEPAM [Concomitant]
     Active Substance: CLONAZEPAM
     Indication: Product used for unknown indication
     Route: 048
  9. CLONAZEPAM [Concomitant]
     Active Substance: CLONAZEPAM
     Route: 048
  10. CLONAZEPAM [Concomitant]
     Active Substance: CLONAZEPAM
     Dosage: 10 ML, EVERY 1 DAY, 2.5 MILLILITER, QID/ 10 MILLILITER, ONCE A DAY (2.5 MILLILITER, QID)
     Route: 048
  11. CLONAZEPAM [Concomitant]
     Active Substance: CLONAZEPAM
     Dosage: 40 ML, ONCE PER DAY, 10 MILLILITER, QID
     Route: 048
  12. LI-LIQUID HS [Concomitant]
     Indication: Product used for unknown indication
     Route: 005
  13. LI-LIQUID HS [Concomitant]
     Route: 005
  14. LI-LIQUID HS [Concomitant]
     Route: 005
  15. LI-LIQUID HS [Concomitant]
     Route: 005
  16. LI-LIQUID HS [Concomitant]
     Dosage: 15 ML (600MG), DAILY
     Route: 005
  17. LI-LIQUID HS [Concomitant]
     Route: 005
  18. LI-LIQUID HS [Concomitant]
     Route: 005
  19. LI-LIQUID HS [Concomitant]
     Dosage: 1 DOSAGE FORM, QD (PM)
     Route: 005
  20. LI-LIQUID HS [Concomitant]
     Dosage: 1 DF, QD (PM)
     Route: 005
  21. LI-LIQUID HS [Concomitant]
     Route: 005
  22. QUETIAPINE [Concomitant]
     Active Substance: QUETIAPINE
     Indication: Product used for unknown indication
     Route: 065
  23. QUETIAPINE [Concomitant]
     Active Substance: QUETIAPINE
     Route: 065
  24. QUETIAPINE [Concomitant]
     Active Substance: QUETIAPINE
  25. QUETIAPINE [Concomitant]
     Active Substance: QUETIAPINE
     Dosage: 20 MILLIMOLE, QD (PM)
     Route: 065
  26. QUETIAPINE [Concomitant]
     Active Substance: QUETIAPINE
     Route: 065
  27. QUETIAPINE [Concomitant]
     Active Substance: QUETIAPINE
     Route: 065
  28. VALPROATE SODIUM [Concomitant]
     Active Substance: VALPROATE SODIUM
     Indication: Product used for unknown indication
     Route: 065
  29. VALPROATE SODIUM [Concomitant]
     Active Substance: VALPROATE SODIUM
     Route: 065
  30. VALPROATE SODIUM [Concomitant]
     Active Substance: VALPROATE SODIUM
     Dosage: 25 MILLIMOLE, PM
     Route: 065
  31. VALPROATE SODIUM [Concomitant]
     Active Substance: VALPROATE SODIUM
  32. VALPROATE SODIUM [Concomitant]
     Active Substance: VALPROATE SODIUM
     Dosage: 18.75 MMOL, ONCE PER DAY (18.75 MILLIMOLE, AM)
     Route: 065
  33. VALPROATE SODIUM [Concomitant]
     Active Substance: VALPROATE SODIUM
  34. LITHIUM [Concomitant]
     Active Substance: LITHIUM
     Indication: Product used for unknown indication
     Route: 005
  35. LITHIUM [Concomitant]
     Active Substance: LITHIUM
     Route: 005
  36. LITHIUM [Concomitant]
     Active Substance: LITHIUM
     Route: 005
  37. LITHIUM [Concomitant]
     Active Substance: LITHIUM
     Dosage: 15 ML (600MG), DAILY
     Route: 005
  38. LITHIUM [Concomitant]
     Active Substance: LITHIUM
     Route: 005
  39. LITHIUM [Concomitant]
     Active Substance: LITHIUM
     Dosage: 1 DOSAGE FORM, QD (PM)
     Route: 005
  40. LITHIUM [Concomitant]
     Active Substance: LITHIUM
     Dosage: 1 DF, QD (PM)
     Route: 005

REACTIONS (10)
  - Neutrophil count increased [Recovered/Resolved]
  - White blood cell count increased [Recovered/Resolved]
  - White blood cell count decreased [Recovered/Resolved]
  - Malaise [Unknown]
  - Eosinophilia [Recovered/Resolved]
  - Aggression [Unknown]
  - Abnormal behaviour [Unknown]
  - Neutropenia [Recovered/Resolved]
  - Drug ineffective [Unknown]
  - Off label use [Unknown]

NARRATIVE: CASE EVENT DATE: 20181101
